FAERS Safety Report 9797410 (Version 1)
Quarter: 2014Q1

REPORT INFORMATION
  Report Type: Spontaneous
  Country: US (occurrence: US)
  Receive Date: 20140106
  Receipt Date: 20140106
  Transmission Date: 20141002
  Serious: Yes (Other)
  Sender: FDA-Public Use
  Company Number: PHEH2013US026558

PATIENT
  Sex: Female

DRUGS (4)
  1. EXFORGE [Suspect]
  2. CYCLOBENZAPRINE [Concomitant]
  3. METFORMIN [Concomitant]
  4. HYDROCODONE [Concomitant]

REACTIONS (2)
  - Osteogenesis imperfecta [Unknown]
  - Diabetes mellitus [Unknown]
